FAERS Safety Report 9738478 (Version 1)
Quarter: 2013Q4

REPORT INFORMATION
  Report Type: Spontaneous
  Country: CN (occurrence: CN)
  Receive Date: 20131208
  Receipt Date: 20131208
  Transmission Date: 20140711
  Serious: Yes (Death)
  Sender: FDA-Public Use
  Company Number: CN-MYLANLABS-2013S1026927

PATIENT
  Age: 35 Year
  Sex: Male

DRUGS (2)
  1. BROMOCRIPTINE [Suspect]
     Indication: PROLACTINOMA
     Dosage: FOR 3D; THEN INCREASED TO 5MG 3 TIMES A DAY
     Route: 065
  2. BROMOCRIPTINE [Suspect]
     Indication: PROLACTINOMA
     Dosage: FOR 3D
     Route: 065

REACTIONS (2)
  - Psychotic disorder [Fatal]
  - Completed suicide [Fatal]
